FAERS Safety Report 4476941-6 (Version None)
Quarter: 2004Q4

REPORT INFORMATION
  Report Type: 
  Country: None (occurrence: None)
  Receive Date: 20041013
  Receipt Date: 20040924
  Transmission Date: 20050328
  Serious: Yes (Death)
  Sender: FDA-Public Use
  Company Number: MEDI-0002266

PATIENT
  Sex: Female

DRUGS (5)
  1. SYNAGIS [Suspect]
     Indication: ANTIVIRAL PROPHYLAXIS
     Dosage: 100 MG, 1 IN 30 D, INTRAMUSCULAR : 80 MG, 1 IN 30 D, INTRAMUSCULAR  : 90 MG, 1 IN 30 D, INTRAMUSCULA
     Route: 030
     Dates: start: 20021025, end: 20030225
  2. SYNAGIS [Suspect]
     Indication: ANTIVIRAL PROPHYLAXIS
     Dosage: 100 MG, 1 IN 30 D, INTRAMUSCULAR : 80 MG, 1 IN 30 D, INTRAMUSCULAR  : 90 MG, 1 IN 30 D, INTRAMUSCULA
     Route: 030
     Dates: start: 20021025
  3. SYNAGIS [Suspect]
     Indication: ANTIVIRAL PROPHYLAXIS
     Dosage: 100 MG, 1 IN 30 D, INTRAMUSCULAR : 80 MG, 1 IN 30 D, INTRAMUSCULAR  : 90 MG, 1 IN 30 D, INTRAMUSCULA
     Route: 030
     Dates: start: 20021122
  4. SYNAGIS [Suspect]
     Indication: ANTIVIRAL PROPHYLAXIS
     Dosage: 100 MG, 1 IN 30 D, INTRAMUSCULAR : 80 MG, 1 IN 30 D, INTRAMUSCULAR  : 90 MG, 1 IN 30 D, INTRAMUSCULA
     Route: 030
     Dates: start: 20021227
  5. SYNAGIS [Suspect]
     Indication: ANTIVIRAL PROPHYLAXIS
     Dosage: 100 MG, 1 IN 30 D, INTRAMUSCULAR : 80 MG, 1 IN 30 D, INTRAMUSCULAR  : 90 MG, 1 IN 30 D, INTRAMUSCULA
     Route: 030
     Dates: start: 20030128

REACTIONS (3)
  - PORTAL VEIN OCCLUSION [None]
  - VARICELLA [None]
  - VARICES OESOPHAGEAL [None]
